FAERS Safety Report 20249151 (Version 1)
Quarter: 2021Q4

REPORT INFORMATION
  Report Type: Report from Study
  Country: KR (occurrence: None)
  Receive Date: 20211229
  Receipt Date: 20211229
  Transmission Date: 20220303
  Serious: Yes (Hospitalization)
  Sender: FDA-Public Use
  Company Number: KR-Eisai Medical Research-EC-2021-105928

PATIENT
  Age: 79 Year
  Sex: Male
  Weight: 53 kg

DRUGS (9)
  1. LENVIMA [Suspect]
     Active Substance: LENVATINIB
     Indication: Hepatocellular carcinoma
     Route: 048
     Dates: start: 20201105, end: 20201117
  2. LENVIMA [Suspect]
     Active Substance: LENVATINIB
     Route: 048
     Dates: start: 20201204, end: 20201227
  3. LENVIMA [Suspect]
     Active Substance: LENVATINIB
     Route: 048
     Dates: start: 20210628, end: 20211104
  4. ELIQUIS [Concomitant]
     Active Substance: APIXABAN
     Indication: Hypertension
     Route: 048
     Dates: start: 20191114
  5. LIVACT GRAN [Concomitant]
     Indication: Cirrhosis alcoholic
     Route: 048
     Dates: start: 20190603
  6. DIETARY SUPPLEMENT\HERBALS\MILK THISTLE [Concomitant]
     Active Substance: DIETARY SUPPLEMENT\HERBALS\MILK THISTLE
     Indication: Cirrhosis alcoholic
     Route: 048
     Dates: start: 20181115
  7. URSODIOL [Concomitant]
     Active Substance: URSODIOL
     Indication: Cirrhosis alcoholic
     Route: 048
     Dates: start: 20180704
  8. GUARDLET [Concomitant]
     Indication: Diabetes mellitus
     Route: 048
     Dates: start: 20201127
  9. ENCOVER [Concomitant]
     Indication: Prophylaxis
     Route: 048
     Dates: start: 20211105

REACTIONS (1)
  - Clostridium difficile infection [Recovered/Resolved]

NARRATIVE: CASE EVENT DATE: 20211122
